FAERS Safety Report 8973637 (Version 1)
Quarter: 2012Q4

REPORT INFORMATION
  Report Type: 
  Country: US (occurrence: US)
  Receive Date: 20121218
  Receipt Date: 20121218
  Transmission Date: 20130627
  Serious: No
  Sender: FDA-Public Use
  Company Number: US-BRISTOL-MYERS SQUIBB COMPANY-16900888

PATIENT
  Age: 51 Year
  Sex: Female

DRUGS (7)
  1. ABILIFY [Suspect]
     Indication: BIPOLAR DISORDER
  2. LUNESTA [Concomitant]
     Dosage: At night
  3. SYNTHROID [Concomitant]
  4. SEROQUEL [Concomitant]
     Dosage: At night
  5. LOPRESSOR [Concomitant]
     Dosage: At morning
  6. CIMETIDINE [Concomitant]
  7. FIORICET [Concomitant]

REACTIONS (5)
  - Parkinsonian rest tremor [Unknown]
  - Confusional state [Unknown]
  - Hemiparesis [Unknown]
  - Gait disturbance [Unknown]
  - Musculoskeletal stiffness [Unknown]
